FAERS Safety Report 6200955-9 (Version None)
Quarter: 2009Q2

REPORT INFORMATION
  Report Type: 
  Country: None (occurrence: None)
  Receive Date: 20090523
  Receipt Date: 20081201
  Transmission Date: 20091009
  Serious: No
  Sender: FDA-Public Use
  Company Number: US-ALEXION-A200800386

PATIENT
  Sex: Male

DRUGS (9)
  1. SOLIRIS [Suspect]
     Indication: PAROXYSMAL NOCTURNAL HAEMOGLOBINURIA
     Dosage: 600 MG, QWK
     Route: 042
     Dates: start: 20081030, end: 20081121
  2. SOLIRIS [Suspect]
     Dosage: 900 MG,
     Route: 042
     Dates: start: 20081202
  3. PROCRIT                            /00909301/ [Concomitant]
     Indication: HAEMOGLOBIN DECREASED
  4. NEUPOGEN [Concomitant]
     Indication: WHITE BLOOD CELL COUNT DECREASED
  5. IRON [Concomitant]
  6. MULTIVITAMIN                       /00831701/ [Concomitant]
  7. PROTONIX                           /01263201/ [Concomitant]
  8. BACTRIM [Concomitant]
     Indication: SKIN INFECTION
  9. DOXYCYCLINE [Concomitant]
     Indication: SKIN INFECTION

REACTIONS (2)
  - HEADACHE [None]
  - NAUSEA [None]
